FAERS Safety Report 13478589 (Version 3)
Quarter: 2018Q1

REPORT INFORMATION
  Report Type: Report from Study
  Country: US (occurrence: US)
  Receive Date: 20170424
  Receipt Date: 20180115
  Transmission Date: 20180508
  Serious: No
  Sender: FDA-Public Use
  Company Number: US-AMGEN-USASL2017014980

PATIENT
  Age: 66 Year
  Sex: Female

DRUGS (1)
  1. REPATHA [Suspect]
     Active Substance: EVOLOCUMAB
     Indication: TYPE IIA HYPERLIPIDAEMIA
     Dosage: 140 MG, Q2WK
     Route: 065

REACTIONS (7)
  - Eczema [Unknown]
  - Cough [Unknown]
  - Skin ulcer [Unknown]
  - Chest pain [Unknown]
  - Ear pruritus [Unknown]
  - Nasopharyngitis [Unknown]
  - Pruritus [Unknown]
